FAERS Safety Report 5287992-6 (Version None)
Quarter: 2007Q2

REPORT INFORMATION
  Report Type: 
  Country: None (occurrence: None)
  Receive Date: 20070402
  Receipt Date: 20070402
  Transmission Date: 20071010
  Serious: Yes (Other)
  Sender: FDA-Public Use
  Company Number: None

PATIENT
  Age: 39 Year
  Sex: Female
  Weight: 52.1637 kg

DRUGS (2)
  1. EFFEXOR XR [Suspect]
     Indication: DEPRESSION
     Dosage: 1 DAILY PO
     Route: 048
  2. EFFEXOR XR [Suspect]
     Dosage: 1 DAILY PO
     Route: 048
     Dates: start: 20070314, end: 20070331

REACTIONS (21)
  - ANXIETY [None]
  - BLOOD CHOLESTEROL INCREASED [None]
  - BLOOD GLUCOSE ABNORMAL [None]
  - BURNING SENSATION [None]
  - DRUG DOSE OMISSION [None]
  - DRUG WITHDRAWAL SYNDROME [None]
  - HEADACHE [None]
  - HYPERTENSION [None]
  - IMPAIRED WORK ABILITY [None]
  - INSOMNIA [None]
  - IRRITABILITY [None]
  - IRRITABLE BOWEL SYNDROME [None]
  - MANIA [None]
  - MIGRAINE [None]
  - NAUSEA [None]
  - NEURALGIA [None]
  - PARANOIA [None]
  - PRURITUS [None]
  - PRURITUS GENERALISED [None]
  - TACHYCARDIA [None]
  - VOMITING [None]
